FAERS Safety Report 11805224 (Version 1)
Quarter: 2015Q4

REPORT INFORMATION
  Report Type: Other
  Country: DE (occurrence: DE)
  Receive Date: 20151206
  Receipt Date: 20151206
  Transmission Date: 20160305
  Serious: Yes (Other)
  Sender: FDA-Public Use
  Company Number: DE-MYLANLABS-2015M1042178

PATIENT

DRUGS (2)
  1. KEPPRA [Suspect]
     Active Substance: LEVETIRACETAM
     Indication: EPILEPSY
     Dosage: ALSO THROUGHOUT PREGNANCY. INFANT^S SERUM LEVEL: 1.6 MG/L (RANGE 10-40 MG/L)
     Route: 063
  2. LAMOTRIGIN [Suspect]
     Active Substance: LAMOTRIGINE
     Indication: EPILEPSY
     Dosage: ALSO THROUGHOUT PREGNANCY. INFANT^S SERUM LEVEL: 2.2 MG/L (RANGE 3-14)
     Route: 063

REACTIONS (3)
  - Loss of consciousness [Recovered/Resolved]
  - Exposure during breast feeding [Unknown]
  - Foetal exposure during pregnancy [Unknown]
